FAERS Safety Report 17915877 (Version 1)
Quarter: 2020Q2

REPORT INFORMATION
  Report Type: Spontaneous
  Country: CA (occurrence: CA)
  Receive Date: 20200619
  Receipt Date: 20200619
  Transmission Date: 20200714
  Serious: Yes (Hospitalization)
  Sender: FDA-Public Use
  Company Number: CA-TEVA-2020-CA-1789489

PATIENT
  Age: 15 Year
  Sex: Female
  Weight: 57 kg

DRUGS (14)
  1. GEMCITABINE HYDROCHLORIDE. [Suspect]
     Active Substance: GEMCITABINE HYDROCHLORIDE
     Indication: HODGKIN^S DISEASE
     Dosage: 2775 MG/M2 DAILY;
     Route: 042
  2. CARBOPLATIN. [Concomitant]
     Active Substance: CARBOPLATIN
  3. ETOPOSIDE. [Concomitant]
     Active Substance: ETOPOSIDE
  4. IFOSFAMIDE. [Concomitant]
     Active Substance: IFOSFAMIDE
  5. DEXAMETHASONE. [Concomitant]
     Active Substance: DEXAMETHASONE
  6. MELPHALAN. [Suspect]
     Active Substance: MELPHALAN
     Indication: HODGKIN^S DISEASE
     Dosage: 60 MG/M2 DAILY;
     Route: 042
  7. BLEOMYCIN [Concomitant]
     Active Substance: BLEOMYCIN SULFATE
  8. CYCLOPHOSPHAMIDE. [Concomitant]
     Active Substance: CYCLOPHOSPHAMIDE
  9. PREDNISONE. [Concomitant]
     Active Substance: PREDNISONE
  10. BRENTUXIMAB VEDOTIN [Concomitant]
     Active Substance: BRENTUXIMAB VEDOTIN
  11. VINCRISTINE SULFATE. [Concomitant]
     Active Substance: VINCRISTINE SULFATE
  12. BUSULFAN. [Suspect]
     Active Substance: BUSULFAN
     Indication: HODGKIN^S DISEASE
     Dosage: 110 MG/M2 DAILY;
     Route: 042
  13. DOXORUBICIN HYDROCHLORIDE. [Concomitant]
     Active Substance: DOXORUBICIN HYDROCHLORIDE
  14. VINORELBINE [Concomitant]
     Active Substance: VINORELBINE TARTRATE

REACTIONS (6)
  - Mucosal inflammation [Recovered/Resolved]
  - Product use in unapproved indication [Recovered/Resolved]
  - Erythema [Recovered/Resolved]
  - Neoplasm progression [Recovered/Resolved]
  - Off label use [Recovered/Resolved]
  - Dysphagia [Recovered/Resolved]
